FAERS Safety Report 20523061 (Version 2)
Quarter: 2022Q1

REPORT INFORMATION
  Report Type: Spontaneous
  Country: US (occurrence: None)
  Receive Date: 20220227
  Receipt Date: 20220228
  Transmission Date: 20220423
  Serious: Yes (Death)
  Sender: FDA-Public Use
  Company Number: US-ROCHE-3036830

PATIENT
  Age: 74 Year
  Sex: Female

DRUGS (1)
  1. ESBRIET [Suspect]
     Active Substance: PIRFENIDONE
     Indication: Pulmonary fibrosis
     Dosage: TAKE 3 TABLETS BY MOUTH THREE TIMES A DAY WITH MEALS
     Route: 048
     Dates: start: 20200213

REACTIONS (1)
  - Death [Fatal]

NARRATIVE: CASE EVENT DATE: 20220127
